FAERS Safety Report 6352373-0 (Version None)
Quarter: 2009Q3

REPORT INFORMATION
  Report Type: 
  Country: None (occurrence: None)
  Receive Date: 20090912
  Receipt Date: 20090622
  Transmission Date: 20100115
  Serious: No
  Sender: FDA-Public Use
  Company Number: US-ABBOTT-08P-163-0436109-00

PATIENT
  Sex: Female
  Weight: 88.53 kg

DRUGS (10)
  1. HUMIRA [Suspect]
     Indication: CROHN'S DISEASE
     Route: 058
     Dates: start: 20080131
  2. ACYCLOVIR [Concomitant]
     Indication: VIRAL INFECTION
     Route: 048
  3. METFORMIN HCL [Concomitant]
     Indication: DIABETES MELLITUS
  4. PROBOITICS [Concomitant]
     Indication: CROHN'S DISEASE
     Route: 048
  5. MESALAZINE [Concomitant]
     Indication: CROHN'S DISEASE
     Route: 048
  6. MERCAPTOPURINE [Concomitant]
     Indication: CROHN'S DISEASE
     Route: 048
  7. SERETIDE [Concomitant]
     Indication: ASTHMA
     Route: 055
  8. CYBALTA [Concomitant]
     Indication: DEPRESSION
     Route: 048
  9. ALPRAZOLAM [Concomitant]
     Indication: DEPRESSION
     Route: 048
  10. ULTRA [Concomitant]
     Indication: CROHN'S DISEASE
     Route: 048

REACTIONS (1)
  - INCORRECT DOSE ADMINISTERED [None]
